FAERS Safety Report 21067326 (Version 2)
Quarter: 2022Q3

REPORT INFORMATION
  Report Type: Spontaneous
  Country: US (occurrence: US)
  Receive Date: 20220712
  Receipt Date: 20220729
  Transmission Date: 20221027
  Serious: Yes (Other)
  Sender: FDA-Public Use
  Company Number: US-SA-SAC20220708001314

PATIENT
  Age: 37 Year
  Sex: Male

DRUGS (4)
  1. ALPROLIX [Suspect]
     Active Substance: EFTRENONACOG ALFA
     Indication: Factor IX deficiency
     Dosage: 8854 U, QW
     Route: 042
     Dates: start: 20220523
  2. ALPROLIX [Suspect]
     Active Substance: EFTRENONACOG ALFA
     Indication: Factor IX deficiency
     Dosage: 8854 U, QW
     Route: 042
     Dates: start: 20220523
  3. ALPROLIX [Suspect]
     Active Substance: EFTRENONACOG ALFA
     Dosage: 10000 U, QW
     Route: 042
     Dates: start: 2022
  4. ALPROLIX [Suspect]
     Active Substance: EFTRENONACOG ALFA
     Dosage: 10000 U, QW
     Route: 042
     Dates: start: 2022

REACTIONS (2)
  - Haemorrhage [Unknown]
  - Limb injury [Unknown]

NARRATIVE: CASE EVENT DATE: 20220704
